FAERS Safety Report 7723241-4 (Version None)
Quarter: 2011Q3

REPORT INFORMATION
  Report Type: 
  Country: None (occurrence: None)
  Receive Date: 20110901
  Receipt Date: 20110826
  Transmission Date: 20111222
  Serious: Yes (Hospitalization)
  Sender: FDA-Public Use
  Company Number: BR-ABBOTT-09P-020-0608154-00

PATIENT
  Sex: Female
  Weight: 49 kg

DRUGS (17)
  1. LUDIOMIL [Concomitant]
     Indication: SLEEP DISORDER THERAPY
     Route: 048
  2. PREDNISOLONE [Suspect]
     Indication: PAIN
     Route: 048
     Dates: start: 20080401, end: 20090701
  3. CLONAZEPAM [Concomitant]
     Indication: INSOMNIA
     Route: 048
     Dates: start: 20060101
  4. DONEPEZIL HYDROCHLORIDE [Concomitant]
     Indication: DEMENTIA ALZHEIMER'S TYPE
     Route: 048
     Dates: start: 20100501
  5. OMEPRAZOLE [Concomitant]
     Indication: GASTRIC DISORDER
     Route: 048
  6. ASPIRIN [Concomitant]
     Indication: CARDIOMEGALY
     Route: 048
  7. ALDOMET [Concomitant]
     Indication: HYPERTENSION
     Route: 048
     Dates: start: 19940101
  8. PROPRANOLOL [Concomitant]
     Indication: HYPERTENSION
     Route: 048
     Dates: start: 19940101
  9. AMLODIPINE [Concomitant]
     Indication: HYPERTENSION
     Route: 048
  10. PROPRANOLOL [Concomitant]
     Indication: TACHYCARDIA
  11. HUMIRA [Suspect]
     Indication: RHEUMATOID ARTHRITIS
     Dosage: INDUCTION DOSE
     Route: 058
     Dates: start: 20081225, end: 20081225
  12. TEROST [Concomitant]
     Indication: RHEUMATOID ARTHRITIS
     Route: 048
     Dates: start: 20080401
  13. CINARIZINA [Concomitant]
     Indication: LABYRINTHITIS
     Route: 048
  14. PEROSTE (?) [Concomitant]
     Indication: RHEUMATOID ARTHRITIS
     Route: 048
     Dates: start: 20080401
  15. HUMIRA [Suspect]
     Route: 058
  16. LEFLUNOMIDE [Concomitant]
     Indication: RHEUMATOID ARTHRITIS
     Route: 048
     Dates: start: 20081201
  17. KETOPROFEN [Concomitant]
     Indication: RHEUMATOID ARTHRITIS
     Route: 048
     Dates: start: 20080401, end: 20090301

REACTIONS (9)
  - NAUSEA [None]
  - VARICOSE VEIN [None]
  - DEMENTIA ALZHEIMER'S TYPE [None]
  - IMPAIRED SELF-CARE [None]
  - DEPRESSION [None]
  - ALOPECIA [None]
  - BLOOD PRESSURE ABNORMAL [None]
  - MEMORY IMPAIRMENT [None]
  - DRY MOUTH [None]
